FAERS Safety Report 8119109-4 (Version None)
Quarter: 2012Q1

REPORT INFORMATION
  Report Type: 
  Country: None (occurrence: None)
  Receive Date: 20120207
  Receipt Date: 20120202
  Transmission Date: 20120608
  Serious: Yes (Hospitalization)
  Sender: FDA-Public Use
  Company Number: DE-ROCHE-1028507

PATIENT
  Sex: Male
  Weight: 70 kg

DRUGS (4)
  1. AVASTIN [Suspect]
     Route: 042
     Dates: start: 20120202
  2. PACLITAXEL [Concomitant]
     Indication: NON-SMALL CELL LUNG CANCER METASTATIC
     Dates: start: 20110728
  3. CARBOPLATIN [Concomitant]
     Indication: NON-SMALL CELL LUNG CANCER METASTATIC
     Dates: start: 20110728
  4. AVASTIN [Suspect]
     Indication: NON-SMALL CELL LUNG CANCER
     Route: 042
     Dates: end: 20111222

REACTIONS (2)
  - PLEURAL EFFUSION [None]
  - INFECTIOUS PLEURAL EFFUSION [None]
